FAERS Safety Report 7236598-8 (Version None)
Quarter: 2011Q1

REPORT INFORMATION
  Report Type: 
  Country: None (occurrence: None)
  Receive Date: 20110113
  Receipt Date: 20110106
  Transmission Date: 20110831
  Serious: Yes (Hospitalization)
  Sender: FDA-Public Use
  Company Number: 1000018087

PATIENT
  Age: 74 Year
  Sex: Female

DRUGS (4)
  1. LERCANIDIPINE [Suspect]
     Dosage: ORAL
     Route: 048
  2. PREVISCAN (FLUINDIONE) [Suspect]
     Dosage: 20 MG (20 MG, 1 IN 1 D), ORAL
     Route: 048
  3. CORENITEC (ENALAPRIL MALEATE, HYDROCHLOROTHIAZIDE) [Suspect]
     Dosage: ORAL
     Route: 048
  4. NEBIVOLOL HCL [Suspect]
     Dosage: ORAL
     Route: 048

REACTIONS (4)
  - INTERNATIONAL NORMALISED RATIO INCREASED [None]
  - VENOUS HAEMORRHAGE [None]
  - VARICOSE VEIN RUPTURED [None]
  - HAEMOGLOBIN DECREASED [None]
